FAERS Safety Report 9559903 (Version 1)
Quarter: 2013Q3

REPORT INFORMATION
  Report Type: Spontaneous
  Country: US (occurrence: None)
  Receive Date: 20130821
  Receipt Date: 20130821
  Transmission Date: 20140515
  Serious: No
  Sender: FDA-Public Use
  Company Number: 1000044901

PATIENT
  Age: 62 Year
  Sex: Male

DRUGS (12)
  1. TUDORZA PRESSAIR [Suspect]
     Indication: CHRONIC OBSTRUCTIVE PULMONARY DISEASE
     Dosage: 800 MCG (400 MCG, 2 IN 1 D), RESPIRATORY (INHALATION)
     Dates: start: 20130429, end: 20130501
  2. HYDROCHLOROTHIAZIDE (HYDROCHLOROTHIAZIDE) [Concomitant]
  3. LOVASTATIN (LOVASTATIN) [Concomitant]
  4. ALEVE (NAPROXEN SODIUM) (NAPROXEN SODIUM) [Concomitant]
  5. ASPIRIN (ACETYLSALICYLIC ACID) (ACETYLSALICYLIC ACID) [Concomitant]
  6. MVI (VITAMINS NOS) (VITAMINS NOS) [Concomitant]
  7. PROVENTIL (ALBUTEROL) (ALBUTEROL) [Concomitant]
  8. SPIRIVA (TIOTROPIUM BROMIDE) (TIOTROPIUM BROMIDE) [Concomitant]
  9. ADVAIR (SERETIDE) (SERETIDE) [Concomitant]
  10. LOSARTAN (LOSARTAN) [Concomitant]
  11. DILTIAZEM (DILTIAZEM HYDROCHLORIDE) (DILTIAZEM HYDROCHLORIDE) [Concomitant]
  12. OXYGEN (OXYGEN) [Concomitant]

REACTIONS (6)
  - Dysuria [None]
  - Headache [None]
  - Cough [None]
  - Gait disturbance [None]
  - Feeling jittery [None]
  - Dry mouth [None]
